FAERS Safety Report 6475341-7 (Version None)
Quarter: 2009Q4

REPORT INFORMATION
  Report Type: 
  Country: None (occurrence: None)
  Receive Date: 20091119
  Receipt Date: 20090925
  Transmission Date: 20100525
  Serious: No
  Sender: FDA-Public Use
  Company Number: WAES 0909USA04200

PATIENT
  Age: 83 Year
  Sex: Female

DRUGS (14)
  1. JANUVIA [Suspect]
     Indication: DIABETES MELLITUS
     Dosage: 100 MG/DAILY/PO
     Route: 048
     Dates: start: 20080101
  2. ACTOPLUS MET [Concomitant]
  3. ADVAIR DISKUS 100/50 [Concomitant]
  4. ALLEGRA [Concomitant]
  5. ASTELIN [Concomitant]
  6. CADUET [Concomitant]
  7. COMBIVENT [Concomitant]
  8. FLONASE [Concomitant]
  9. HYZAAR [Concomitant]
  10. NEXIUM [Concomitant]
  11. ALBUTEROL [Concomitant]
  12. ASPIRIN [Concomitant]
  13. INSULIN, BIPHASIC ISOPHANE [Concomitant]
  14. PREDNISONE [Concomitant]

REACTIONS (2)
  - ASTHMA [None]
  - BLOOD GLUCOSE DECREASED [None]
